FAERS Safety Report 14783267 (Version 3)
Quarter: 2022Q4

REPORT INFORMATION
  Report Type: Spontaneous
  Country: IT (occurrence: IT)
  Receive Date: 20180420
  Receipt Date: 20221129
  Transmission Date: 20230112
  Serious: Yes (Hospitalization)
  Sender: FDA-Public Use
  Company Number: IT-AUROBINDO-AUR-APL-2018-020496

PATIENT
  Age: 37 Year
  Sex: Female

DRUGS (4)
  1. ALPRAZOLAM [Suspect]
     Active Substance: ALPRAZOLAM
     Indication: Anxiety
     Dosage: 9 DOSAGE FORM IN TOTAL
     Route: 048
     Dates: start: 20180326, end: 20180326
  2. ARCOXIA [Suspect]
     Active Substance: ETORICOXIB
     Indication: Inflammatory pain
     Dosage: 20 DOSAGE FORM IN TOTAL
     Route: 065
     Dates: start: 20180326, end: 20180326
  3. THEOPHYLLINE ANHYDROUS [Suspect]
     Active Substance: THEOPHYLLINE ANHYDROUS
     Indication: Asthma
     Dosage: 4 DOSAGE FORM IN TOTAL
     Route: 065
     Dates: start: 20180326, end: 20180326
  4. TAPENTADOL [Suspect]
     Active Substance: TAPENTADOL
     Indication: Pain
     Dosage: 250 MILLIGRAM IN TOTAL
     Route: 048
     Dates: start: 20180326, end: 20180326

REACTIONS (2)
  - Drug abuse [Recovered/Resolved]
  - Vomiting [Recovered/Resolved]

NARRATIVE: CASE EVENT DATE: 20180326
